FAERS Safety Report 4774401-6 (Version None)
Quarter: 2005Q3

REPORT INFORMATION
  Report Type: 
  Country: None (occurrence: None)
  Receive Date: 20050919
  Receipt Date: 20050524
  Transmission Date: 20060218
  Serious: Yes (Life-Threatening, Other)
  Sender: FDA-Public Use
  Company Number: HQWYE988926MAY05

PATIENT
  Age: 45 Year
  Sex: Female
  Weight: 56.75 kg

DRUGS (1)
  1. ADVIL [Suspect]
     Indication: HEADACHE
     Dosage: ONE DOSE 2 CAPSULES ORAL
     Route: 048
     Dates: start: 20050529, end: 20050529

REACTIONS (1)
  - ANAPHYLACTIC REACTION [None]
